FAERS Safety Report 9789466 (Version 4)
Quarter: 2014Q1

REPORT INFORMATION
  Report Type: Report from Study
  Country: CA (occurrence: CA)
  Receive Date: 20131231
  Receipt Date: 20140318
  Transmission Date: 20141002
  Serious: Yes (Other)
  Sender: FDA-Public Use
  Company Number: CA-ROCHE-1185787

PATIENT
  Age: 39 Year
  Sex: Female
  Weight: 63 kg

DRUGS (6)
  1. ACTEMRA [Suspect]
     Indication: RHEUMATOID ARTHRITIS
     Route: 042
     Dates: start: 20101208
  2. TYLENOL [Concomitant]
  3. OMEGA 3-6-9 COMPLEX PRODUCT NOS [Concomitant]
  4. ALENDRONATE SODIUM [Concomitant]
  5. HYDROMORPHONE [Concomitant]
  6. PREDNISONE [Concomitant]

REACTIONS (2)
  - Intervertebral disc protrusion [Not Recovered/Not Resolved]
  - Nasopharyngitis [Recovered/Resolved]
